FAERS Safety Report 12768363 (Version 2)
Quarter: 2021Q3

REPORT INFORMATION
  Report Type: Spontaneous
  Country: US (occurrence: US)
  Receive Date: 20160921
  Receipt Date: 20210901
  Transmission Date: 20211014
  Serious: Yes (Hospitalization, Other)
  Sender: FDA-Public Use
  Company Number: US-FRI-1000087650

PATIENT
  Sex: Female

DRUGS (1)
  1. CEFTAROLINE FOSAMIL UNK [Suspect]
     Active Substance: CEFTAROLINE FOSAMIL
     Indication: INFECTIVE ANEURYSM
     Dosage: 600 MG, Q12H

REACTIONS (4)
  - Eosinophilia [Unknown]
  - Off label use [Unknown]
  - Exfoliative rash [Unknown]
  - Febrile neutropenia [Recovered/Resolved]
